FAERS Safety Report 19584644 (Version 1)
Quarter: 2021Q3

REPORT INFORMATION
  Report Type: Spontaneous
  Country: US (occurrence: US)
  Receive Date: 20210720
  Receipt Date: 20210720
  Transmission Date: 20211014
  Serious: Yes (Other)
  Sender: FDA-Public Use
  Company Number: US-GILEAD-2021-0541155

PATIENT
  Age: 43 Year
  Sex: Female
  Weight: 64.4 kg

DRUGS (1)
  1. YESCARTA [Suspect]
     Active Substance: AXICABTAGENE CILOLEUCEL
     Indication: DIFFUSE LARGE B-CELL LYMPHOMA
     Dosage: UNK, ONCE
     Route: 042
     Dates: start: 20210406, end: 20210406

REACTIONS (7)
  - Neurotoxicity [Unknown]
  - Cytokine release syndrome [Unknown]
  - Tachycardia [Unknown]
  - Decreased appetite [Unknown]
  - Hypotension [Unknown]
  - Aspartate aminotransferase increased [Unknown]
  - Fatigue [Unknown]

NARRATIVE: CASE EVENT DATE: 20210414
